FAERS Safety Report 25750834 (Version 1)
Quarter: 2025Q3

REPORT INFORMATION
  Report Type: Spontaneous
  Country: EU (occurrence: EU)
  Receive Date: 20250902
  Receipt Date: 20250902
  Transmission Date: 20251020
  Serious: Yes (Hospitalization)
  Sender: MYLAN
  Company Number: None

PATIENT
  Age: 66 Year
  Sex: Female
  Weight: 83 kg

DRUGS (56)
  1. LYRICA [Suspect]
     Active Substance: PREGABALIN
     Indication: Neuralgia
     Dosage: 450 MILLIGRAM, QD
  2. LYRICA [Suspect]
     Active Substance: PREGABALIN
     Dosage: 450 MILLIGRAM, QD
     Route: 048
  3. LYRICA [Suspect]
     Active Substance: PREGABALIN
     Dosage: 450 MILLIGRAM, QD
     Route: 048
  4. LYRICA [Suspect]
     Active Substance: PREGABALIN
     Dosage: 450 MILLIGRAM, QD
  5. CHOLECALCIFEROL [Suspect]
     Active Substance: CHOLECALCIFEROL
     Indication: Prophylaxis
     Dosage: 1 DOSAGE FORM, MONTHLY
  6. CHOLECALCIFEROL [Suspect]
     Active Substance: CHOLECALCIFEROL
     Dosage: 1 DOSAGE FORM, MONTHLY
     Route: 048
  7. CHOLECALCIFEROL [Suspect]
     Active Substance: CHOLECALCIFEROL
     Dosage: 1 DOSAGE FORM, MONTHLY
     Route: 048
  8. CHOLECALCIFEROL [Suspect]
     Active Substance: CHOLECALCIFEROL
     Dosage: 1 DOSAGE FORM, MONTHLY
  9. ATORVASTATIN [Suspect]
     Active Substance: ATORVASTATIN
     Indication: Cardiovascular event prophylaxis
     Dosage: 40 MILLIGRAM, QD
  10. ATORVASTATIN [Suspect]
     Active Substance: ATORVASTATIN
     Dosage: 40 MILLIGRAM, QD
     Route: 048
  11. ATORVASTATIN [Suspect]
     Active Substance: ATORVASTATIN
     Dosage: 40 MILLIGRAM, QD
     Route: 048
  12. ATORVASTATIN [Suspect]
     Active Substance: ATORVASTATIN
     Dosage: 40 MILLIGRAM, QD
  13. DULOXETINE [Suspect]
     Active Substance: DULOXETINE
     Indication: Neuralgia
     Dosage: 60 MILLIGRAM, QD
  14. DULOXETINE [Suspect]
     Active Substance: DULOXETINE
     Dosage: 60 MILLIGRAM, QD
     Route: 048
  15. DULOXETINE [Suspect]
     Active Substance: DULOXETINE
     Dosage: 60 MILLIGRAM, QD
     Route: 048
  16. DULOXETINE [Suspect]
     Active Substance: DULOXETINE
     Dosage: 60 MILLIGRAM, QD
  17. ACETAMINOPHEN [Suspect]
     Active Substance: ACETAMINOPHEN
     Indication: Pain
  18. ACETAMINOPHEN [Suspect]
     Active Substance: ACETAMINOPHEN
     Route: 048
  19. ACETAMINOPHEN [Suspect]
     Active Substance: ACETAMINOPHEN
     Route: 048
  20. ACETAMINOPHEN [Suspect]
     Active Substance: ACETAMINOPHEN
  21. ALFUZOSIN [Suspect]
     Active Substance: ALFUZOSIN
     Indication: Bladder sphincter atony
     Dosage: 10 MILLIGRAM, QD
  22. ALFUZOSIN [Suspect]
     Active Substance: ALFUZOSIN
     Dosage: 10 MILLIGRAM, QD
     Route: 048
  23. ALFUZOSIN [Suspect]
     Active Substance: ALFUZOSIN
     Dosage: 10 MILLIGRAM, QD
     Route: 048
  24. ALFUZOSIN [Suspect]
     Active Substance: ALFUZOSIN
     Dosage: 10 MILLIGRAM, QD
  25. POLYETHYLENE GLYCOLS [Suspect]
     Active Substance: POLYETHYLENE GLYCOLS
     Indication: Constipation
     Dosage: 1 DOSAGE FORM, QD
  26. POLYETHYLENE GLYCOLS [Suspect]
     Active Substance: POLYETHYLENE GLYCOLS
     Dosage: 1 DOSAGE FORM, QD
     Route: 048
  27. POLYETHYLENE GLYCOLS [Suspect]
     Active Substance: POLYETHYLENE GLYCOLS
     Dosage: 1 DOSAGE FORM, QD
     Route: 048
  28. POLYETHYLENE GLYCOLS [Suspect]
     Active Substance: POLYETHYLENE GLYCOLS
     Dosage: 1 DOSAGE FORM, QD
  29. ULTOMIRIS [Suspect]
     Active Substance: RAVULIZUMAB-CWVZ
     Indication: Neuromyelitis optica spectrum disorder
     Dates: start: 20240926, end: 20250728
  30. ULTOMIRIS [Suspect]
     Active Substance: RAVULIZUMAB-CWVZ
     Route: 042
     Dates: start: 20240926, end: 20250728
  31. ULTOMIRIS [Suspect]
     Active Substance: RAVULIZUMAB-CWVZ
     Route: 042
     Dates: start: 20240926, end: 20250728
  32. ULTOMIRIS [Suspect]
     Active Substance: RAVULIZUMAB-CWVZ
     Dates: start: 20240926, end: 20250728
  33. BACLOFEN [Suspect]
     Active Substance: BACLOFEN
     Indication: Paraparesis
     Dosage: 75 MILLIGRAM, QD
  34. BACLOFEN [Suspect]
     Active Substance: BACLOFEN
     Dosage: 75 MILLIGRAM, QD
     Route: 048
  35. BACLOFEN [Suspect]
     Active Substance: BACLOFEN
     Dosage: 75 MILLIGRAM, QD
     Route: 048
  36. BACLOFEN [Suspect]
     Active Substance: BACLOFEN
     Dosage: 75 MILLIGRAM, QD
  37. RIVOTRIL [Suspect]
     Active Substance: CLONAZEPAM
     Indication: Paraparesis
     Dosage: 4 GTT DROPS, QD
  38. RIVOTRIL [Suspect]
     Active Substance: CLONAZEPAM
     Dosage: 4 GTT DROPS, QD
     Route: 048
  39. RIVOTRIL [Suspect]
     Active Substance: CLONAZEPAM
     Dosage: 4 GTT DROPS, QD
     Route: 048
  40. RIVOTRIL [Suspect]
     Active Substance: CLONAZEPAM
     Dosage: 4 GTT DROPS, QD
  41. LEVOTHYROXINE [Suspect]
     Active Substance: LEVOTHYROXINE
     Indication: Hypothyroidism
     Dosage: 112 MICROGRAM, QD
  42. LEVOTHYROXINE [Suspect]
     Active Substance: LEVOTHYROXINE
     Dosage: 112 MICROGRAM, QD
     Route: 048
  43. LEVOTHYROXINE [Suspect]
     Active Substance: LEVOTHYROXINE
     Dosage: 112 MICROGRAM, QD
     Route: 048
  44. LEVOTHYROXINE [Suspect]
     Active Substance: LEVOTHYROXINE
     Dosage: 112 MICROGRAM, QD
  45. CYANOCOBALAMIN [Suspect]
     Active Substance: CYANOCOBALAMIN
     Indication: Vitamin supplementation
  46. CYANOCOBALAMIN [Suspect]
     Active Substance: CYANOCOBALAMIN
     Route: 048
  47. CYANOCOBALAMIN [Suspect]
     Active Substance: CYANOCOBALAMIN
     Route: 048
  48. CYANOCOBALAMIN [Suspect]
     Active Substance: CYANOCOBALAMIN
  49. PENICILLIN V [Suspect]
     Active Substance: PENICILLIN V
     Indication: Prophylaxis
     Dosage: 2 DOSAGE FORM, QD
  50. PENICILLIN V [Suspect]
     Active Substance: PENICILLIN V
     Dosage: 2 DOSAGE FORM, QD
     Route: 048
  51. PENICILLIN V [Suspect]
     Active Substance: PENICILLIN V
     Dosage: 2 DOSAGE FORM, QD
     Route: 048
  52. PENICILLIN V [Suspect]
     Active Substance: PENICILLIN V
     Dosage: 2 DOSAGE FORM, QD
  53. PLAVIX [Concomitant]
     Active Substance: CLOPIDOGREL BISULFATE
     Indication: Cardiovascular event prophylaxis
     Dosage: 75 MILLIGRAM, QD
  54. PLAVIX [Concomitant]
     Active Substance: CLOPIDOGREL BISULFATE
     Dosage: 75 MILLIGRAM, QD
     Route: 048
  55. PLAVIX [Concomitant]
     Active Substance: CLOPIDOGREL BISULFATE
     Dosage: 75 MILLIGRAM, QD
     Route: 048
  56. PLAVIX [Concomitant]
     Active Substance: CLOPIDOGREL BISULFATE
     Dosage: 75 MILLIGRAM, QD

REACTIONS (1)
  - Ischaemic stroke [Recovering/Resolving]

NARRATIVE: CASE EVENT DATE: 20250806
